FAERS Safety Report 11755097 (Version 1)
Quarter: 2015Q4

REPORT INFORMATION
  Report Type: Spontaneous
  Country: US (occurrence: US)
  Receive Date: 20151119
  Receipt Date: 20151119
  Transmission Date: 20160304
  Serious: Yes (Hospitalization, Other)
  Sender: FDA-Public Use
  Company Number: US-VALIDUS PHARMACEUTICALS LLC-US-2015VAL000713

PATIENT
  Age: 58 Year
  Sex: Female

DRUGS (1)
  1. METOPROLOL TARTRATE. [Suspect]
     Active Substance: METOPROLOL TARTRATE
     Indication: PRODUCT USED FOR UNKNOWN INDICATION
     Dosage: UNK

REACTIONS (13)
  - Acute respiratory distress syndrome [Unknown]
  - Cellulitis [Unknown]
  - Lung infiltration [Recovering/Resolving]
  - Pleural effusion [Unknown]
  - Productive cough [Unknown]
  - Dyspnoea [Unknown]
  - Crepitations [Unknown]
  - Eosinophilic pneumonia acute [Recovering/Resolving]
  - Respiratory alkalosis [Unknown]
  - Hypoxia [Unknown]
  - Pain in extremity [Unknown]
  - Alveolar-arterial oxygen gradient increased [Unknown]
  - Peripheral swelling [Unknown]
